FAERS Safety Report 7597431-8 (Version None)
Quarter: 2011Q3

REPORT INFORMATION
  Report Type: 
  Country: None (occurrence: None)
  Receive Date: 20110708
  Receipt Date: 20110627
  Transmission Date: 20111222
  Serious: Yes (Hospitalization)
  Sender: FDA-Public Use
  Company Number: PHFR2011GB03872

PATIENT
  Sex: Female

DRUGS (4)
  1. IBUPROFEN [Suspect]
  2. CLOZAPINE [Suspect]
     Indication: SCHIZOPHRENIA
     Dosage: 300 MG
     Route: 048
     Dates: start: 20031128
  3. VENLAFAXINE HYDROCHLORIDE [Suspect]
  4. ABILIFY [Suspect]

REACTIONS (1)
  - INTENTIONAL OVERDOSE [None]
